FAERS Safety Report 21762431 (Version 1)
Quarter: 2022Q4

REPORT INFORMATION
  Report Type: Report from Study
  Country: TW (occurrence: TW)
  Receive Date: 20221221
  Receipt Date: 20221221
  Transmission Date: 20230112
  Serious: Yes (Hospitalization, Other)
  Sender: FDA-Public Use
  Company Number: TW-TAKEDA-2022TUS096602

PATIENT
  Sex: Male

DRUGS (161)
  1. IDURSULFASE [Suspect]
     Active Substance: IDURSULFASE
     Indication: Mucopolysaccharidosis II
     Dosage: UNK, 1/WEEK
     Route: 042
     Dates: start: 20110113
  2. IDURSULFASE [Suspect]
     Active Substance: IDURSULFASE
     Dosage: UNK, 1/WEEK
     Route: 042
     Dates: start: 20120119, end: 20180126
  3. CHLORPHENIRAMINE MALEATE [Concomitant]
     Active Substance: CHLORPHENIRAMINE MALEATE
     Indication: Premedication
     Dosage: UNK
     Route: 042
  4. CHLORPHENIRAMINE MALEATE [Concomitant]
     Active Substance: CHLORPHENIRAMINE MALEATE
     Indication: Antiallergic therapy
     Dosage: UNK
     Route: 042
     Dates: start: 20170105, end: 20171229
  5. CHLORPHENIRAMINE MALEATE [Concomitant]
     Active Substance: CHLORPHENIRAMINE MALEATE
     Dosage: UNK
     Route: 048
     Dates: start: 20170907, end: 20170912
  6. BACITRACIN [Concomitant]
     Active Substance: BACITRACIN
     Indication: Anti-infective therapy
     Dosage: UNK
     Route: 061
  7. AMBROXOL HYDROCHLORIDE [Concomitant]
     Active Substance: AMBROXOL HYDROCHLORIDE
     Indication: Respiratory disorder
     Dosage: UNK
     Route: 048
     Dates: start: 20050929
  8. SERRAPEPTASE [Concomitant]
     Active Substance: SERRAPEPTASE
     Indication: Respiratory disorder
     Dosage: UNK
     Route: 048
     Dates: start: 20070712
  9. EUFAN [Concomitant]
     Indication: Respiratory disorder
     Dosage: UNK
     Route: 048
     Dates: start: 20071011, end: 20071019
  10. COUGH MIXTURE A [Concomitant]
     Indication: Respiratory disorder
     Dosage: UNK
     Route: 048
     Dates: start: 20090925
  11. COUGH MIXTURE A [Concomitant]
     Indication: Cough
     Dosage: UNK
     Route: 048
     Dates: start: 20110714, end: 20110721
  12. COUGH MIXTURE A [Concomitant]
     Indication: Antitussive therapy
     Dosage: UNK
     Route: 048
     Dates: start: 20110804, end: 20110811
  13. COUGH MIXTURE A [Concomitant]
     Dosage: UNK
     Route: 048
     Dates: start: 20111006, end: 20111013
  14. COUGH MIXTURE A [Concomitant]
     Dosage: UNK
     Route: 048
     Dates: start: 20121108, end: 20121110
  15. COUGH MIXTURE A [Concomitant]
     Dosage: UNK
     Route: 048
     Dates: start: 20130131, end: 20130212
  16. COUGH MIXTURE A [Concomitant]
     Dosage: UNK
     Route: 048
     Dates: start: 20160121, end: 20160128
  17. COUGH MIXTURE A [Concomitant]
     Dosage: UNK
     Route: 048
     Dates: start: 20160121, end: 20160128
  18. COUGH MIXTURE A [Concomitant]
     Dosage: UNK
     Route: 048
     Dates: start: 20160204, end: 20160207
  19. COUGH MIXTURE A [Concomitant]
     Dosage: UNK
     Route: 048
     Dates: start: 20160407, end: 20160410
  20. COUGH MIXTURE A [Concomitant]
     Dosage: UNK
     Route: 048
     Dates: start: 20160512, end: 20160515
  21. COUGH MIXTURE A [Concomitant]
     Dosage: UNK
     Route: 048
     Dates: start: 20160607, end: 20160614
  22. COUGH MIXTURE A [Concomitant]
     Dosage: UNK
     Route: 048
     Dates: start: 20161103, end: 20161108
  23. COUGH MIXTURE A [Concomitant]
     Dosage: UNK
     Route: 048
     Dates: start: 20161201, end: 20161208
  24. COUGH MIXTURE A [Concomitant]
     Dosage: UNK
     Route: 048
     Dates: start: 20170907, end: 20170912
  25. BROEN C [Concomitant]
     Indication: Anti-infective therapy
     Dosage: UNK
     Route: 048
     Dates: start: 20110714, end: 20110721
  26. BROEN C [Concomitant]
     Dosage: UNK
     Route: 048
     Dates: start: 20110804, end: 20110811
  27. DEXTROMETHORPHAN HYDROBROMIDE\LYSOZYME HYDROCHLORIDE\POTASSIUM CRESOLS [Concomitant]
     Active Substance: DEXTROMETHORPHAN HYDROBROMIDE\LYSOZYME HYDROCHLORIDE\POTASSIUM CRESOLSULFONATE
     Indication: Respiratory disorder
     Dosage: UNK
     Route: 048
     Dates: start: 20110908, end: 20110929
  28. AMBROXOL HYDROCHLORIDE [Concomitant]
     Active Substance: AMBROXOL HYDROCHLORIDE
     Indication: Respiratory disorder
     Dosage: UNK
     Route: 048
     Dates: start: 20110908, end: 20111013
  29. CYPROMIN [Concomitant]
     Indication: Respiratory disorder
     Dosage: UNK
     Route: 048
     Dates: start: 20121108, end: 20121110
  30. OXACILLIN [Concomitant]
     Active Substance: OXACILLIN SODIUM
     Indication: Anti-infective therapy
     Dosage: UNK
     Route: 042
     Dates: start: 20121122, end: 20121202
  31. AUGMENTIN [Concomitant]
     Active Substance: AMOXICILLIN\CLAVULANATE POTASSIUM
     Indication: Anti-infective therapy
     Dosage: UNK
     Route: 048
     Dates: start: 20121206, end: 20130110
  32. AUGMENTIN [Concomitant]
     Active Substance: AMOXICILLIN\CLAVULANATE POTASSIUM
     Dosage: UNK
     Route: 048
     Dates: start: 20160121, end: 20160128
  33. AUGMENTIN [Concomitant]
     Active Substance: AMOXICILLIN\CLAVULANATE POTASSIUM
     Dosage: UNK
     Route: 048
     Dates: start: 20160121, end: 20160128
  34. AMBROXOL [Concomitant]
     Active Substance: AMBROXOL
     Indication: Cough
     Dosage: UNK
     Route: 048
     Dates: start: 20130131, end: 20130212
  35. ACETAMINOPHEN [Concomitant]
     Active Substance: ACETAMINOPHEN
     Indication: Pain
     Dosage: UNK
     Route: 048
     Dates: start: 20130207, end: 20130212
  36. ACETAMINOPHEN [Concomitant]
     Active Substance: ACETAMINOPHEN
     Dosage: UNK
     Route: 048
     Dates: start: 20150929, end: 20151001
  37. CYPROHEPTADINE [Concomitant]
     Active Substance: CYPROHEPTADINE
     Indication: Hypersensitivity
     Dosage: UNK
     Route: 048
     Dates: start: 20130207, end: 20130212
  38. CYPROHEPTADINE [Concomitant]
     Active Substance: CYPROHEPTADINE
     Indication: Cellulitis
     Dosage: UNK
     Route: 048
     Dates: start: 20150917, end: 20150924
  39. CYPROHEPTADINE [Concomitant]
     Active Substance: CYPROHEPTADINE
     Indication: Pruritus
     Dosage: UNK
     Route: 048
     Dates: start: 20160121, end: 20160128
  40. CYPROHEPTADINE [Concomitant]
     Active Substance: CYPROHEPTADINE
     Dosage: UNK
     Route: 048
     Dates: start: 20160204, end: 20160207
  41. CYPROHEPTADINE [Concomitant]
     Active Substance: CYPROHEPTADINE
     Dosage: UNK
     Route: 048
     Dates: start: 20160512, end: 20160515
  42. CYPROHEPTADINE [Concomitant]
     Active Substance: CYPROHEPTADINE
     Dosage: UNK
     Route: 048
     Dates: start: 20160519, end: 20160522
  43. CEPHALEXIN [Concomitant]
     Active Substance: CEPHALEXIN
     Indication: Anti-infective therapy
     Dosage: UNK
     Route: 048
     Dates: start: 20131219, end: 20131225
  44. CEPHALEXIN [Concomitant]
     Active Substance: CEPHALEXIN
     Indication: Infection
     Dosage: UNK
     Route: 048
     Dates: start: 20151224, end: 20151231
  45. AMOXICILLIN [Concomitant]
     Active Substance: AMOXICILLIN
     Indication: Anti-infective therapy
     Dosage: UNK
     Route: 048
     Dates: start: 20141002, end: 20141009
  46. AMOXICILLIN [Concomitant]
     Active Substance: AMOXICILLIN
     Dosage: UNK
     Route: 048
     Dates: start: 20150827, end: 20150903
  47. CLAVULANIC ACID [Concomitant]
     Active Substance: CLAVULANIC ACID
     Indication: Infection
     Dosage: UNK
     Route: 048
     Dates: start: 20140917, end: 20150924
  48. TETANUS TOXOIDS [Concomitant]
     Active Substance: TETANUS TOXOIDS
     Indication: Prophylaxis
     Dosage: UNK
     Route: 030
     Dates: start: 20150929, end: 20150929
  49. NEOMYCIN [Concomitant]
     Active Substance: NEOMYCIN
     Indication: Infection
     Dosage: UNK
     Route: 061
     Dates: start: 20150929, end: 20150929
  50. NEOMYCIN [Concomitant]
     Active Substance: NEOMYCIN
     Indication: Anti-infective therapy
     Dosage: UNK
     Route: 061
     Dates: start: 20151224, end: 20151227
  51. NEOMYCIN [Concomitant]
     Active Substance: NEOMYCIN
     Indication: Antibiotic therapy
     Dosage: UNK
     Route: 061
     Dates: start: 20170123, end: 20170127
  52. NEOMYCIN [Concomitant]
     Active Substance: NEOMYCIN
     Dosage: UNK
     Route: 061
     Dates: start: 20170410, end: 20170414
  53. PROPOFOL [Concomitant]
     Active Substance: PROPOFOL
     Indication: Anaesthesia
     Dosage: UNK
     Route: 042
     Dates: start: 20150929, end: 20150929
  54. DEXTROMETHORPHAN [Concomitant]
     Active Substance: DEXTROMETHORPHAN
     Indication: Cough
     Dosage: UNK
     Route: 048
     Dates: start: 20150929, end: 20151004
  55. ACETAMINOPHEN [Concomitant]
     Active Substance: ACETAMINOPHEN
     Indication: Antipyresis
     Dosage: UNK
     Route: 048
     Dates: start: 20150929, end: 20150930
  56. ACETAMINOPHEN [Concomitant]
     Active Substance: ACETAMINOPHEN
     Indication: Analgesic therapy
     Dosage: UNK
     Route: 048
     Dates: start: 20170120, end: 20170127
  57. ACETAMINOPHEN [Concomitant]
     Active Substance: ACETAMINOPHEN
     Dosage: UNK
     Route: 048
     Dates: start: 20170127, end: 20170130
  58. ACETAMINOPHEN [Concomitant]
     Active Substance: ACETAMINOPHEN
     Dosage: UNK
     Route: 048
     Dates: start: 20170425, end: 20170426
  59. DEXTROMETHORPHAN HYDROBROMIDE [Concomitant]
     Active Substance: DEXTROMETHORPHAN HYDROBROMIDE
     Indication: Antitussive therapy
     Dosage: UNK
     Route: 048
     Dates: start: 20150929, end: 20151001
  60. DEXTROMETHORPHAN HYDROBROMIDE [Concomitant]
     Active Substance: DEXTROMETHORPHAN HYDROBROMIDE
     Dosage: UNK
     Route: 048
     Dates: start: 20151001, end: 20151004
  61. CEFLEXIN [Concomitant]
     Indication: Anti-infective therapy
     Dosage: UNK
     Route: 048
     Dates: start: 20151224, end: 20151231
  62. Soonmelt [Concomitant]
     Indication: Antibiotic therapy
     Dosage: UNK
     Route: 042
     Dates: start: 20160120, end: 20160125
  63. Soonmelt [Concomitant]
     Indication: Sterilisation
     Dosage: UNK
     Route: 050
     Dates: start: 20170120, end: 20170120
  64. Soonmelt [Concomitant]
     Indication: Antiinflammatory therapy
     Dosage: UNK
     Route: 042
     Dates: start: 20170125, end: 20170127
  65. Soonmelt [Concomitant]
     Dosage: UNK
     Route: 042
     Dates: start: 20180104, end: 20180116
  66. CYPROH [Concomitant]
     Indication: Antiallergic therapy
     Dosage: UNK
     Route: 048
     Dates: start: 20160121, end: 20160128
  67. CYPROH [Concomitant]
     Indication: Antiallergic therapy
     Dosage: UNK
     Route: 048
     Dates: start: 20160204, end: 20160207
  68. MUBROXOL [Concomitant]
     Indication: Mucosal disorder
     Dosage: UNK
     Route: 048
     Dates: start: 20160121, end: 20160128
  69. MUBROXOL [Concomitant]
     Dosage: UNK
     Route: 048
     Dates: start: 20160204, end: 20160207
  70. MUBROXOL [Concomitant]
     Dosage: UNK
     Route: 048
     Dates: start: 20160607, end: 20160614
  71. MUBROXOL [Concomitant]
     Dosage: UNK
     Route: 048
     Dates: start: 20161103, end: 20161108
  72. MUBROXOL [Concomitant]
     Dosage: UNK
     Route: 048
     Dates: start: 20161201, end: 20161208
  73. MUBROXOL [Concomitant]
     Dosage: UNK
     Route: 048
     Dates: start: 20170413, end: 20170420
  74. VENTOLIN [Concomitant]
     Active Substance: ALBUTEROL SULFATE
     Indication: Asthma
     Dosage: UNK
     Route: 048
     Dates: start: 20160607, end: 20160612
  75. VENTOLIN [Concomitant]
     Active Substance: ALBUTEROL SULFATE
     Indication: Bronchitis
     Dosage: UNK
     Route: 048
     Dates: start: 20161124, end: 20161201
  76. VENTOLIN [Concomitant]
     Active Substance: ALBUTEROL SULFATE
     Indication: Bronchospasm
     Dosage: UNK
     Route: 055
     Dates: start: 20170425, end: 20170425
  77. VENTOLIN [Concomitant]
     Active Substance: ALBUTEROL SULFATE
     Dosage: UNK
     Route: 055
     Dates: start: 20180104, end: 20180118
  78. ANXIEDIN [Concomitant]
     Indication: Sleep disorder
     Dosage: UNK
     Route: 048
     Dates: start: 20170105, end: 20170108
  79. ANXIEDIN [Concomitant]
     Dosage: UNK
     Route: 048
     Dates: start: 20170112, end: 20170115
  80. ANXIEDIN [Concomitant]
     Dosage: UNK
     Route: 048
     Dates: start: 20170622, end: 20170625
  81. XANAX [Concomitant]
     Active Substance: ALPRAZOLAM
     Indication: Sleep disorder
     Dosage: UNK
     Route: 048
     Dates: start: 20170119, end: 20170126
  82. XANAX [Concomitant]
     Active Substance: ALPRAZOLAM
     Dosage: UNK
     Route: 048
     Dates: start: 20170127, end: 20170203
  83. XANAX [Concomitant]
     Active Substance: ALPRAZOLAM
     Dosage: UNK
     Route: 048
     Dates: start: 20170810, end: 20170813
  84. DICLOFENAC SODIUM [Concomitant]
     Active Substance: DICLOFENAC SODIUM
     Indication: Antiinflammatory therapy
     Dosage: UNK
     Route: 048
     Dates: start: 20170120, end: 20170127
  85. DICLOFENAC SODIUM [Concomitant]
     Active Substance: DICLOFENAC SODIUM
     Indication: Analgesic therapy
  86. BISOLVON [Concomitant]
     Active Substance: BROMHEXINE HYDROCHLORIDE
     Dosage: UNK
     Route: 048
     Dates: start: 20170120, end: 20170127
  87. BISOLVON [Concomitant]
     Active Substance: BROMHEXINE HYDROCHLORIDE
     Dosage: UNK
     Route: 055
     Dates: start: 20170425, end: 20170426
  88. AZITHROMYCIN [Concomitant]
     Active Substance: AZITHROMYCIN
     Indication: Antibiotic therapy
     Dosage: UNK
     Route: 048
     Dates: start: 20170122, end: 20170125
  89. HYDROXYZINE HYDROCHLORIDE [Concomitant]
     Active Substance: HYDROXYZINE HYDROCHLORIDE
     Indication: Antiallergic therapy
     Dosage: UNK
     Route: 048
     Dates: start: 20170124, end: 20170124
  90. AMOXICILLIN\CLAVULANATE POTASSIUM [Concomitant]
     Active Substance: AMOXICILLIN\CLAVULANATE POTASSIUM
     Indication: Antibiotic therapy
     Dosage: UNK
     Route: 048
     Dates: start: 20170127, end: 20170203
  91. AMOXICILLIN\CLAVULANATE POTASSIUM [Concomitant]
     Active Substance: AMOXICILLIN\CLAVULANATE POTASSIUM
     Indication: Anti-infective therapy
     Dosage: UNK
     Route: 048
     Dates: start: 20171102, end: 20171116
  92. EXTRACOMB [Concomitant]
     Indication: Rash
     Dosage: UNK
     Route: 061
     Dates: start: 20170216, end: 20170302
  93. EXTRACOMB [Concomitant]
     Indication: Viral infection
     Dosage: UNK
     Route: 061
     Dates: start: 20180113, end: 20180126
  94. NEXIUM [Concomitant]
     Active Substance: ESOMEPRAZOLE MAGNESIUM
     Indication: Stress ulcer
     Dosage: UNK
     Route: 042
     Dates: start: 20170425, end: 20170425
  95. NEXIUM [Concomitant]
     Active Substance: ESOMEPRAZOLE MAGNESIUM
     Dosage: UNK
     Route: 042
     Dates: start: 20180107, end: 20180116
  96. VITAMIN B COMPLEX [Concomitant]
     Active Substance: CYANOCOBALAMIN\DEXPANTHENOL\NIACINAMIDE\PYRIDOXINE HYDROCHLORIDE\RIBOFLAVIN 5^-PHOSPHATE SODIUM\THIA
     Indication: Nutritional supplementation
     Dosage: UNK
     Route: 042
     Dates: start: 20170425, end: 20170425
  97. VITAMIN B COMPLEX [Concomitant]
     Active Substance: CYANOCOBALAMIN\DEXPANTHENOL\NIACINAMIDE\PYRIDOXINE HYDROCHLORIDE\RIBOFLAVIN 5^-PHOSPHATE SODIUM\THIA
     Indication: Hypovitaminosis
  98. DEXAMETHASONE [Concomitant]
     Active Substance: DEXAMETHASONE
     Indication: Antiallergic therapy
     Dosage: UNK
     Route: 055
     Dates: start: 20170425, end: 20170425
  99. DEXAMETHASONE [Concomitant]
     Active Substance: DEXAMETHASONE
     Dosage: UNK
     Route: 055
     Dates: start: 20180104, end: 20180104
  100. SOLU-CORTEF [Concomitant]
     Active Substance: HYDROCORTISONE SODIUM SUCCINATE
     Indication: Antiallergic therapy
     Dosage: UNK
     Route: 042
     Dates: start: 20170425, end: 20170425
  101. SOLU-CORTEF [Concomitant]
     Active Substance: HYDROCORTISONE SODIUM SUCCINATE
     Indication: Bronchospasm
     Dosage: UNK
     Route: 042
     Dates: start: 20180105, end: 20180113
  102. EPINEPHRINE [Concomitant]
     Active Substance: EPINEPHRINE
     Indication: Antiallergic therapy
     Dosage: UNK
     Route: 055
     Dates: start: 20170425, end: 20170425
  103. EPINEPHRINE [Concomitant]
     Active Substance: EPINEPHRINE
     Indication: Shock
     Dosage: UNK
     Route: 042
     Dates: start: 20180120, end: 20180126
  104. SENOKOT [Concomitant]
     Active Substance: SENNOSIDES
     Indication: Constipation
     Dosage: UNK
     Route: 048
     Dates: start: 20170425, end: 20170430
  105. MAGNESIUM OXIDE [Concomitant]
     Active Substance: MAGNESIUM OXIDE
     Indication: Antacid therapy
     Dosage: UNK
     Route: 048
     Dates: start: 20170425, end: 20170426
  106. MAGNESIUM OXIDE [Concomitant]
     Active Substance: MAGNESIUM OXIDE
     Indication: Faeces soft
     Dosage: UNK
     Route: 048
     Dates: start: 20180123, end: 20180125
  107. MAGNESIUM OXIDE [Concomitant]
     Active Substance: MAGNESIUM OXIDE
     Indication: Abdominal discomfort
  108. VITACIN [Concomitant]
     Active Substance: CAPSAICIN\MENTHOL\METHYL SALICYLATE
     Indication: Vitamin C deficiency
     Dosage: UNK
     Route: 042
     Dates: start: 20170425, end: 20170426
  109. VITACIN [Concomitant]
     Active Substance: CAPSAICIN\MENTHOL\METHYL SALICYLATE
     Indication: Respiratory failure
     Dosage: UNK
     Route: 042
     Dates: start: 20180105, end: 20180105
  110. NALBUPHINE HYDROCHLORIDE [Concomitant]
     Active Substance: NALBUPHINE HYDROCHLORIDE
     Indication: Procedural pain
     Dosage: UNK
     Route: 042
     Dates: start: 20170425, end: 20170426
  111. MEPERIDINE [Concomitant]
     Active Substance: MEPERIDINE
     Indication: Procedural pain
     Dosage: UNK
     Route: 030
     Dates: start: 20170425, end: 20170426
  112. SYNTREND [Concomitant]
     Indication: Cardiac failure
     Dosage: UNK
     Route: 048
     Dates: start: 20170601, end: 20171221
  113. SYNTREND [Concomitant]
     Indication: Hypertension
     Dosage: UNK
     Route: 048
     Dates: start: 20180108, end: 20180125
  114. CHLORAMPHENICOL [Concomitant]
     Active Substance: CHLORAMPHENICOL
     Indication: Ocular hyperaemia
     Dosage: UNK
     Route: 061
     Dates: start: 20170720, end: 20170727
  115. CHLORAMPHENICOL [Concomitant]
     Active Substance: CHLORAMPHENICOL
     Indication: Eye swelling
  116. OFTALMOLOSA CUSI GENTAMICIN [Concomitant]
     Indication: Ocular hyperaemia
     Dosage: UNK
     Route: 061
     Dates: start: 20170620, end: 20170727
  117. OFTALMOLOSA CUSI GENTAMICIN [Concomitant]
     Indication: Eye swelling
  118. CETIMIN [Concomitant]
     Indication: Antiallergic therapy
     Dosage: UNK
     Route: 048
     Dates: start: 20170928, end: 20171005
  119. FUROSEMIDE [Concomitant]
     Active Substance: FUROSEMIDE
     Indication: Mitral valve incompetence
     Dosage: UNK
     Route: 048
     Dates: start: 20171123, end: 20180126
  120. FUROSEMIDE [Concomitant]
     Active Substance: FUROSEMIDE
     Indication: Diuretic therapy
     Dosage: UNK
     Route: 048
     Dates: start: 20180108, end: 20180125
  121. FUROSEMIDE [Concomitant]
     Active Substance: FUROSEMIDE
     Indication: Oedema
  122. SPIRONOLACTONE [Concomitant]
     Active Substance: SPIRONOLACTONE
     Indication: Mitral valve incompetence
     Dosage: UNK
     Route: 048
     Dates: start: 20171123, end: 20180126
  123. SPIRONOLACTONE [Concomitant]
     Active Substance: SPIRONOLACTONE
     Indication: Cardiac failure
     Dosage: UNK
     Route: 048
     Dates: start: 20180115, end: 20180126
  124. SPIRONOLACTONE [Concomitant]
     Active Substance: SPIRONOLACTONE
     Indication: Diuretic therapy
  125. SPIRONOLACTONE [Concomitant]
     Active Substance: SPIRONOLACTONE
     Indication: Oedema
  126. SPIRONOLACTONE [Concomitant]
     Active Substance: SPIRONOLACTONE
     Indication: Hypertension
  127. MIDATIN [Concomitant]
     Indication: Respiratory failure
     Dosage: UNK
     Route: 042
     Dates: start: 20180104, end: 20180115
  128. KETALAR [Concomitant]
     Active Substance: KETAMINE HYDROCHLORIDE
     Indication: Sedation
     Dosage: UNK
     Route: 042
     Dates: start: 20180104, end: 20180105
  129. KETALAR [Concomitant]
     Active Substance: KETAMINE HYDROCHLORIDE
     Indication: Bronchospasm
     Dosage: UNK
     Route: 042
     Dates: start: 20180105, end: 20180105
  130. PROCATEROL HYDROCHLORIDE [Concomitant]
     Active Substance: PROCATEROL HYDROCHLORIDE
     Indication: Bronchospasm
     Dosage: UNK
     Route: 048
     Dates: start: 20180104, end: 20180113
  131. ATROPINE SULFATE [Concomitant]
     Active Substance: ATROPINE SULFATE
     Indication: Premedication
     Dosage: UNK
     Route: 042
     Dates: start: 20180104, end: 20180105
  132. Hemoclot [Concomitant]
     Indication: Respiratory failure
     Dosage: UNK
     Route: 042
     Dates: start: 20180105, end: 20180105
  133. Hemoclot [Concomitant]
     Indication: Haemostasis
     Dosage: UNK
     Route: 042
     Dates: start: 20180108, end: 20180124
  134. PHYTONADIONE [Concomitant]
     Active Substance: PHYTONADIONE
     Indication: Haemorrhage prophylaxis
     Dosage: UNK
     Route: 042
     Dates: start: 20180105, end: 20180105
  135. SODIUM BICARBONATE [Concomitant]
     Active Substance: SODIUM BICARBONATE
     Indication: Respiratory failure
     Dosage: UNK
     Route: 042
     Dates: start: 20180105, end: 20180105
  136. Vitacal [Concomitant]
     Indication: Respiratory failure
     Dosage: UNK
     Route: 042
     Dates: start: 20180105, end: 20180105
  137. ATRACURIUM BESYLATE [Concomitant]
     Active Substance: ATRACURIUM BESYLATE
     Indication: Sedation
     Dosage: UNK
     Route: 042
     Dates: start: 20180105, end: 20180105
  138. FUROSEMIDE [Concomitant]
     Active Substance: FUROSEMIDE
     Indication: Polyuria
     Dosage: UNK
     Route: 042
     Dates: start: 20180105, end: 20180126
  139. FUROSEMIDE [Concomitant]
     Active Substance: FUROSEMIDE
     Indication: Oedema
  140. FUROSEMIDE [Concomitant]
     Active Substance: FUROSEMIDE
     Indication: Blood pressure decreased
  141. AGGLUTEX [Concomitant]
     Indication: Antiplatelet therapy
     Dosage: UNK
     Route: 042
     Dates: start: 20180105, end: 20180126
  142. KCL [Concomitant]
     Active Substance: POTASSIUM CHLORIDE
     Indication: Hypokalaemia
     Dosage: UNK
     Route: 042
     Dates: start: 20180108, end: 20180125
  143. FLUTICASONE PROPIONATE [Concomitant]
     Active Substance: FLUTICASONE PROPIONATE
     Indication: Asthma
     Dosage: UNK
     Route: 055
     Dates: start: 20180108, end: 20180108
  144. GENTA [Concomitant]
     Indication: Antibiotic therapy
     Dosage: UNK
     Route: 042
     Dates: start: 20180108, end: 20180113
  145. GENTA [Concomitant]
     Indication: Sterilisation
  146. GENTA [Concomitant]
     Indication: Antiinflammatory therapy
  147. ANESVAN [Concomitant]
     Indication: Anaesthesia
     Dosage: UNK
     Route: 042
     Dates: start: 20180112, end: 20180126
  148. ANESVAN [Concomitant]
     Indication: Sedative therapy
  149. ZINC OXIDE [Concomitant]
     Active Substance: ZINC OXIDE
     Indication: Eczema
     Dosage: UNK
     Route: 061
     Dates: start: 20180112, end: 20180126
  150. ALBUMIN HUMAN [Concomitant]
     Active Substance: ALBUMIN HUMAN
     Indication: Hypoproteinaemia
     Dosage: UNK
     Route: 042
     Dates: start: 20180116, end: 20180121
  151. ALBUMIN HUMAN [Concomitant]
     Active Substance: ALBUMIN HUMAN
     Indication: Shock
  152. DIFLUCAN [Concomitant]
     Active Substance: FLUCONAZOLE
     Indication: Antifungal treatment
     Dosage: UNK
     Route: 042
     Dates: start: 20180116, end: 20180126
  153. CARBOMER [Concomitant]
     Active Substance: CARBOMER
     Indication: Dry eye
     Dosage: UNK
     Route: 061
     Dates: start: 20180117, end: 20180126
  154. MONTMORILLONITE [Concomitant]
     Active Substance: MONTMORILLONITE
     Indication: Antidiarrhoeal supportive care
     Dosage: UNK
     Route: 048
     Dates: start: 20180118, end: 20180119
  155. CANSEN [Concomitant]
     Indication: Infection
     Dosage: UNK
     Route: 061
     Dates: start: 20180118, end: 20180126
  156. RADI K [Concomitant]
     Indication: Hypokalaemia
     Dosage: UNK
     Route: 048
     Dates: start: 20180119, end: 20180120
  157. PIPERACILLIN SODIUM\TAZOBACTAM SODIUM [Concomitant]
     Active Substance: PIPERACILLIN SODIUM\TAZOBACTAM SODIUM
     Indication: Antibiotic therapy
     Dosage: UNK
     Route: 042
     Dates: start: 20180121, end: 20180126
  158. FAMOTIDINE [Concomitant]
     Active Substance: FAMOTIDINE
     Indication: Antacid therapy
     Dosage: UNK
     Route: 042
     Dates: start: 20180125, end: 20180126
  159. FAMOTIDINE [Concomitant]
     Active Substance: FAMOTIDINE
     Indication: Ulcer
  160. THROUGH [Concomitant]
     Indication: Constipation
     Dosage: UNK
     Route: 048
     Dates: start: 20180123, end: 20180126
  161. LACTUL [Concomitant]
     Indication: Constipation
     Dosage: UNK
     Route: 048
     Dates: start: 20180125, end: 20180126

REACTIONS (1)
  - Periorbital cellulitis [Recovered/Resolved]

NARRATIVE: CASE EVENT DATE: 20121119
